FAERS Safety Report 7499782-4 (Version None)
Quarter: 2011Q2

REPORT INFORMATION
  Report Type: 
  Country: None (occurrence: None)
  Receive Date: 20110524
  Receipt Date: 20110519
  Transmission Date: 20111010
  Serious: Yes (Death, Life-Threatening, Hospitalization)
  Sender: FDA-Public Use
  Company Number: US-ACTELION-A-NJ2011-48903

PATIENT

DRUGS (6)
  1. SILDENAFIL CITRATE [Concomitant]
  2. LASIX [Concomitant]
  3. SIMVASTATIN [Concomitant]
  4. ESTERIFIED OESTROGENS [Concomitant]
  5. EPOPROSTENOL SODIUM [Suspect]
     Indication: PULMONARY ARTERIAL HYPERTENSION
     Dosage: 36 NG/KG, PER MIN
     Route: 041
     Dates: start: 20100816, end: 20110519
  6. ALDACTONE [Concomitant]

REACTIONS (5)
  - MICROCYTIC ANAEMIA [None]
  - THROMBOCYTOPENIA [None]
  - DEATH [None]
  - HYPOXIA [None]
  - CARDIAC FAILURE CONGESTIVE [None]
